FAERS Safety Report 6514868-6 (Version None)
Quarter: 2009Q4

REPORT INFORMATION
  Report Type: 
  Country: None (occurrence: None)
  Receive Date: 20091223
  Receipt Date: 20080722
  Transmission Date: 20100525
  Serious: Yes (Other)
  Sender: FDA-Public Use
  Company Number: US-CELGENEUS-163-21880-08070016

PATIENT
  Sex: Male

DRUGS (8)
  1. REVLIMID [Suspect]
     Indication: MULTIPLE MYELOMA
     Route: 048
     Dates: start: 20070129, end: 20070201
  2. REVLIMID [Suspect]
     Route: 048
     Dates: start: 20070322, end: 20070401
  3. REVLIMID [Suspect]
     Route: 048
     Dates: start: 20070416, end: 20070501
  4. REVLIMID [Suspect]
     Route: 048
     Dates: start: 20070514, end: 20080501
  5. REVLIMID [Suspect]
     Route: 048
     Dates: start: 20080523
  6. M.V.I. [Concomitant]
     Indication: DRUG USE FOR UNKNOWN INDICATION
     Route: 065
  7. COUMADIN [Concomitant]
     Indication: PROPHYLAXIS
     Dates: start: 20070118
  8. COUMADIN [Concomitant]
     Route: 065
     Dates: start: 20070705

REACTIONS (1)
  - SQUAMOUS CELL CARCINOMA OF SKIN [None]
